FAERS Safety Report 24417346 (Version 3)
Quarter: 2024Q4

REPORT INFORMATION
  Report Type: Spontaneous
  Country: CA (occurrence: CA)
  Receive Date: 20241009
  Receipt Date: 20241120
  Transmission Date: 20250115
  Serious: Yes (Death, Hospitalization, Other)
  Sender: BAXTER
  Company Number: CA-BAXTER-2024BAX025479

PATIENT
  Age: 78 Year
  Sex: Male

DRUGS (2)
  1. LACTATED RINGERS SOLUTION [Suspect]
     Active Substance: CALCIUM CHLORIDE\POTASSIUM CHLORIDE\SODIUM CHLORIDE\SODIUM LACTATE
     Dosage: UNK
     Route: 065
  2. EPINEPHRINE [Suspect]
     Active Substance: EPINEPHRINE
     Dosage: UNK
     Route: 065

REACTIONS (7)
  - Pulmonary embolism [Fatal]
  - Aspiration [Fatal]
  - Respiratory arrest [Fatal]
  - Critical illness [Fatal]
  - Device failure [Fatal]
  - Device power source issue [Fatal]
  - COVID-19 pneumonia [Unknown]

NARRATIVE: CASE EVENT DATE: 20240826
